FAERS Safety Report 12976016 (Version 3)
Quarter: 2017Q1

REPORT INFORMATION
  Report Type: Spontaneous
  Country: US (occurrence: US)
  Receive Date: 20161126
  Receipt Date: 20170306
  Transmission Date: 20170428
  Serious: No
  Sender: FDA-Public Use
  Company Number: US-ASTRAZENECA-2016SF19857

PATIENT
  Sex: Female

DRUGS (3)
  1. PULMICORT TURBUHALER [Suspect]
     Active Substance: BUDESONIDE
     Dosage: FLEXHALER 180 MCG FROM ONCE A DAY TO TWICE DAILY
     Route: 055
  2. PULMICORT TURBUHALER [Suspect]
     Active Substance: BUDESONIDE
     Dosage: RESPULES, UNKNOWN
     Route: 055
     Dates: start: 201608
  3. PULMICORT TURBUHALER [Suspect]
     Active Substance: BUDESONIDE
     Dosage: FLEXHALER 180 MCG DAILY
     Route: 055
     Dates: start: 201610

REACTIONS (5)
  - Intentional product misuse [Unknown]
  - Cough [Not Recovered/Not Resolved]
  - Off label use [Unknown]
  - Drug administered to patient of inappropriate age [Unknown]
  - Dyspnoea [Not Recovered/Not Resolved]
